FAERS Safety Report 4959270-3 (Version None)
Quarter: 2006Q1

REPORT INFORMATION
  Report Type: 
  Country: None (occurrence: None)
  Receive Date: 20060331
  Receipt Date: 20060323
  Transmission Date: 20060701
  Serious: Yes (Other)
  Sender: FDA-Public Use
  Company Number: US-SANOFI-SYNTHELABO-A03200601773

PATIENT
  Sex: Female

DRUGS (1)
  1. AMBIEN [Suspect]
     Indication: INSOMNIA
     Dosage: UNK
     Route: 048
     Dates: start: 20040101

REACTIONS (6)
  - ABNORMAL SLEEP-RELATED EVENT [None]
  - AMNESIA [None]
  - DIABETES MELLITUS [None]
  - EATING DISORDER [None]
  - SLEEP WALKING [None]
  - WEIGHT INCREASED [None]
